FAERS Safety Report 4515619-7 (Version None)
Quarter: 2004Q4

REPORT INFORMATION
  Report Type: 
  Country: None (occurrence: None)
  Receive Date: 20041126
  Receipt Date: 20041112
  Transmission Date: 20050328
  Serious: Yes (Life-Threatening, Hospitalization)
  Sender: FDA-Public Use
  Company Number: 2004242963DE

PATIENT
  Age: 40 Year
  Sex: Female
  Weight: 75 kg

DRUGS (1)
  1. DEPO-PROVERA SUSPENSION, STERIEL MEDROXYPROGESTERONE ACETATE) [Suspect]
     Indication: CONTRACEPTION
     Dosage: 1ST INJECTION, EVERY 12 WEEKS), INTRAMUSCULAR
     Route: 030
     Dates: start: 20010101, end: 20010101

REACTIONS (1)
  - ACUTE MYOCARDIAL INFARCTION [None]
